FAERS Safety Report 6346221-2 (Version None)
Quarter: 2009Q3

REPORT INFORMATION
  Report Type: 
  Country: None (occurrence: None)
  Receive Date: 20090909
  Receipt Date: 20090901
  Transmission Date: 20100115
  Serious: Yes (Hospitalization)
  Sender: FDA-Public Use
  Company Number: PHHY2009IL37359

PATIENT
  Age: 76 Year
  Sex: Female

DRUGS (2)
  1. EXELON [Suspect]
     Indication: DEMENTIA ALZHEIMER'S TYPE
     Route: 062
  2. MEMANTINE HCL [Concomitant]

REACTIONS (3)
  - DIARRHOEA [None]
  - PRODUCT SUBSTITUTION ISSUE [None]
  - URINARY TRACT INFECTION [None]
